FAERS Safety Report 11884530 (Version 1)
Quarter: 2015Q4

REPORT INFORMATION
  Report Type: Spontaneous
  Country: US (occurrence: None)
  Receive Date: 20151231
  Receipt Date: 20151231
  Transmission Date: 20160305
  Serious: Yes (Disabling)
  Sender: FDA-Public Use
  Company Number: None

PATIENT
  Age: 56 Year
  Sex: Male
  Weight: 92.99 kg

DRUGS (4)
  1. ESOMEPRAZOLE MAG DR 40MG CAP DR. REDDY^S LABORATORY OF INDIA [Suspect]
     Active Substance: ESOMEPRAZOLE MAGNESIUM
     Indication: GASTROOESOPHAGEAL REFLUX DISEASE
     Route: 048
     Dates: start: 20151201, end: 20151225
  2. ESOMEPRAZOLE MAG DR 40MG CAP DR. REDDY^S LABORATORY OF INDIA [Suspect]
     Active Substance: ESOMEPRAZOLE MAGNESIUM
     Indication: GASTRIC DISORDER
     Route: 048
     Dates: start: 20151201, end: 20151225
  3. EXFORGE [Concomitant]
     Active Substance: AMLODIPINE BESYLATE\VALSARTAN
  4. CRESTOR [Concomitant]
     Active Substance: ROSUVASTATIN CALCIUM

REACTIONS (4)
  - Chest pain [None]
  - Gastrooesophageal reflux disease [None]
  - Product substitution issue [None]
  - Gastric disorder [None]

NARRATIVE: CASE EVENT DATE: 20151201
